FAERS Safety Report 17506023 (Version 1)
Quarter: 2020Q1

REPORT INFORMATION
  Report Type: Report from Study
  Country: FR (occurrence: FR)
  Receive Date: 20200305
  Receipt Date: 20200305
  Transmission Date: 20200409
  Serious: Yes (Death, Hospitalization, Other)
  Sender: FDA-Public Use
  Company Number: FR-BRISTOL-MYERS SQUIBB COMPANY-BMS-2020-017580

PATIENT
  Age: 88 Year
  Sex: Female
  Weight: 52 kg

DRUGS (2)
  1. APIXABAN [Suspect]
     Active Substance: APIXABAN
     Indication: PRODUCT USED FOR UNKNOWN INDICATION
     Dosage: UNK
     Route: 048
     Dates: start: 20190827, end: 20190929
  2. ALPRAZOLAM. [Concomitant]
     Active Substance: ALPRAZOLAM
     Indication: PRODUCT USED FOR UNKNOWN INDICATION
     Dosage: UNK
     Route: 048

REACTIONS (2)
  - Malignant neoplasm progression [Fatal]
  - General physical health deterioration [Fatal]

NARRATIVE: CASE EVENT DATE: 20190926
